FAERS Safety Report 17032859 (Version 3)
Quarter: 2022Q3

REPORT INFORMATION
  Report Type: Spontaneous
  Country: US (occurrence: US)
  Receive Date: 20191114
  Receipt Date: 20220701
  Transmission Date: 20221027
  Serious: No
  Sender: FDA-Public Use
  Company Number: US-PFIZER INC-2018097939

PATIENT
  Age: 34 Year
  Sex: Female
  Weight: 68.04 kg

DRUGS (4)
  1. SOMAVERT [Suspect]
     Active Substance: PEGVISOMANT
     Indication: Hormone level abnormal
     Dosage: 15 MG, DAILY
     Dates: start: 201608
  2. SOMAVERT [Suspect]
     Active Substance: PEGVISOMANT
     Indication: Insulin-like growth factor increased
     Dosage: 10 MG, DAILY
     Route: 058
  3. SOMAVERT [Suspect]
     Active Substance: PEGVISOMANT
     Indication: Acromegaly
  4. SANDOSTATIN [Concomitant]
     Active Substance: OCTREOTIDE ACETATE
     Indication: Hormone level abnormal
     Dosage: 30 MG, MONTHLY, [ONCE A MONTH]
     Route: 030

REACTIONS (4)
  - Alopecia [Unknown]
  - Insulin-like growth factor decreased [Unknown]
  - Injection site pain [Unknown]
  - Injection site bruising [Unknown]

NARRATIVE: CASE EVENT DATE: 20140101
